FAERS Safety Report 4645787-8 (Version None)
Quarter: 2005Q2

REPORT INFORMATION
  Report Type: 
  Country: None (occurrence: None)
  Receive Date: 20050422
  Receipt Date: 20050422
  Transmission Date: 20051028
  Serious: Yes (Other)
  Sender: FDA-Public Use
  Company Number: None

PATIENT
  Age: 81 Year
  Sex: Male
  Weight: 89.4 kg

DRUGS (18)
  1. SIMVASTATIN [Suspect]
  2. SYNTHROID [Concomitant]
  3. NITROGLYCERIN [Concomitant]
  4. GABAPENTIN [Concomitant]
  5. SIMVASTATIN [Concomitant]
  6. HYDROCHLOROTHIAZIDE [Concomitant]
  7. AMIODARONE HCL [Concomitant]
  8. ASPIRIN [Concomitant]
  9. CALCIUM 500MG/VITAMIN D [Concomitant]
  10. METOPROLOL SUCCINATE [Concomitant]
  11. MULTI-VITAMIN [Concomitant]
  12. VITAMIN B COMPLEX/VITAMIN C [Concomitant]
  13. MULTIVITAMIN [Concomitant]
  14. SODIUM FLUORIDE [Concomitant]
  15. ASPIRIN [Concomitant]
  16. AMOXICILLIN [Concomitant]
  17. CLOPIDOGREL BISULFATE [Concomitant]
  18. TRAMADOL HCL [Concomitant]

REACTIONS (1)
  - MYALGIA [None]
